FAERS Safety Report 4535432-4 (Version None)
Quarter: 2004Q4

REPORT INFORMATION
  Report Type: 
  Country: None (occurrence: None)
  Receive Date: 20041222
  Receipt Date: 20041207
  Transmission Date: 20050328
  Serious: Yes (Other)
  Sender: FDA-Public Use
  Company Number: JP-MERCK-0412USA01118

PATIENT
  Age: 75 Year
  Sex: Female

DRUGS (11)
  1. PRORENAL [Concomitant]
     Route: 065
     Dates: start: 20040908, end: 20041126
  2. BIOFERMIN [Concomitant]
     Route: 048
     Dates: start: 20040716
  3. NITRODERM [Concomitant]
     Route: 065
     Dates: start: 20040227, end: 20041006
  4. WARFARIN [Concomitant]
     Route: 048
     Dates: start: 20040908, end: 20041006
  5. LIPLE [Concomitant]
     Route: 065
     Dates: start: 20041004
  6. PROTAPHANE INNOLET [Concomitant]
     Route: 058
     Dates: start: 20010416
  7. PROTAPHANE INNOLET [Concomitant]
     Route: 058
     Dates: start: 20010416
  8. PEPCID RPD [Suspect]
     Indication: GASTRITIS
     Route: 048
     Dates: start: 20030220, end: 20041019
  9. RILMAZAFONE HYDROCHLORIDE [Concomitant]
     Route: 065
     Dates: start: 20040301, end: 20041017
  10. ASPIRIN [Concomitant]
     Route: 048
     Dates: start: 20040908, end: 20041203
  11. SELBEX [Concomitant]
     Route: 048
     Dates: start: 20040908

REACTIONS (1)
  - DEPRESSED LEVEL OF CONSCIOUSNESS [None]
